FAERS Safety Report 6527731-1 (Version None)
Quarter: 2010Q1

REPORT INFORMATION
  Report Type: 
  Country: None (occurrence: None)
  Receive Date: 20100106
  Receipt Date: 20091223
  Transmission Date: 20100710
  Serious: Yes (Hospitalization, Disabling)
  Sender: FDA-Public Use
  Company Number: IE-BIOGENIDEC-2009BI041907

PATIENT
  Age: 32 Year
  Sex: Female

DRUGS (2)
  1. AVONEX [Suspect]
     Indication: MULTIPLE SCLEROSIS
     Dates: start: 20010701, end: 20030701
  2. CONTRACEPTIVE PILL [Concomitant]
     Indication: CONTRACEPTION
     Route: 048

REACTIONS (10)
  - DISTURBANCE IN ATTENTION [None]
  - DYSSTASIA [None]
  - GENERAL PHYSICAL HEALTH DETERIORATION [None]
  - LOSS OF PROPRIOCEPTION [None]
  - MEMORY IMPAIRMENT [None]
  - MULTIPLE SCLEROSIS RELAPSE [None]
  - MUSCULAR WEAKNESS [None]
  - OPTIC NEURITIS [None]
  - VISION BLURRED [None]
  - VISUAL ACUITY REDUCED [None]
